FAERS Safety Report 17709531 (Version 4)
Quarter: 2020Q2

REPORT INFORMATION
  Report Type: Report from Study
  Country: CA (occurrence: CA)
  Receive Date: 20200427
  Receipt Date: 20200509
  Transmission Date: 20200714
  Serious: Yes (Other)
  Sender: FDA-Public Use
  Company Number: CA-UCBSA-2020017126

PATIENT
  Age: 24 Year
  Sex: Female

DRUGS (4)
  1. CERTOLIZUMAB PEGOL AUTOCLICKS [Suspect]
     Active Substance: CERTOLIZUMAB PEGOL
     Indication: RHEUMATOID ARTHRITIS
     Dosage: 400 MILLIGRAM, EV 2 WEEKS(QOW)
     Route: 058
     Dates: start: 20200420
  2. PREDNISONE. [Concomitant]
     Active Substance: PREDNISONE
     Indication: PRODUCT USED FOR UNKNOWN INDICATION
  3. CERTOLIZUMAB PEGOL AUTOCLICKS [Suspect]
     Active Substance: CERTOLIZUMAB PEGOL
     Indication: ANKYLOSING SPONDYLITIS
  4. COPPER IUD [Concomitant]
     Active Substance: COPPER
     Indication: PRODUCT USED FOR UNKNOWN INDICATION
     Dosage: UNK
     Dates: start: 2019

REACTIONS (8)
  - Rash erythematous [Recovering/Resolving]
  - Pyrexia [Recovering/Resolving]
  - Mammogram abnormal [Unknown]
  - Arthralgia [Recovering/Resolving]
  - Ocular hyperaemia [Recovering/Resolving]
  - Infection [Unknown]
  - Eye pain [Recovered/Resolved]
  - Injection site discolouration [Unknown]

NARRATIVE: CASE EVENT DATE: 2020
